FAERS Safety Report 6253007-6 (Version None)
Quarter: 2009Q3

REPORT INFORMATION
  Report Type: 
  Country: None (occurrence: None)
  Receive Date: 20090701
  Receipt Date: 20090623
  Transmission Date: 20100115
  Serious: Yes (Other)
  Sender: FDA-Public Use
  Company Number: US-AMGEN-QUU351605

PATIENT
  Sex: Female

DRUGS (1)
  1. ENBREL [Suspect]
     Indication: RHEUMATOID ARTHRITIS
     Route: 058
     Dates: start: 20080901, end: 20090601

REACTIONS (9)
  - BLOOD PRESSURE INCREASED [None]
  - BUNION [None]
  - DIZZINESS [None]
  - DYSPEPSIA [None]
  - FOOT DEFORMITY [None]
  - INJECTION SITE PAIN [None]
  - MUSCULAR WEAKNESS [None]
  - NAUSEA [None]
  - URINE CYTOLOGY ABNORMAL [None]
